FAERS Safety Report 21500910 (Version 4)
Quarter: 2022Q4

REPORT INFORMATION
  Report Type: Spontaneous
  Country: CA (occurrence: CA)
  Receive Date: 20221025
  Receipt Date: 20221226
  Transmission Date: 20230113
  Serious: Yes (Other)
  Sender: FDA-Public Use
  Company Number: CA-CELLTRION INC.-2022CA016169

PATIENT

DRUGS (6)
  1. INFLECTRA [Suspect]
     Active Substance: INFLIXIMAB-DYYB
     Indication: Crohn^s disease
     Dosage: 300 MG, WEEK 0
     Route: 042
     Dates: start: 20220722, end: 20220722
  2. INFLECTRA [Suspect]
     Active Substance: INFLIXIMAB-DYYB
     Dosage: 300 MG, WEEK 2
     Route: 042
     Dates: start: 20220805, end: 20220805
  3. INFLECTRA [Suspect]
     Active Substance: INFLIXIMAB-DYYB
     Dosage: 300 MG, WEEK 6 THEN ANOTHER INFUSION AFTER 4 WEEKS AND MAINTENANCE Q 8 WEEKS
     Route: 042
     Dates: start: 20220915
  4. INFLECTRA [Suspect]
     Active Substance: INFLIXIMAB-DYYB
     Dosage: 300 MG, WEEK 6 THEN ANOTHER INFUSION AFTER 4 WEEKS AND MAINTENANCE Q 8 WEEKS
     Route: 042
     Dates: start: 20220915, end: 20221117
  5. INFLECTRA [Suspect]
     Active Substance: INFLIXIMAB-DYYB
     Dosage: 300 MG, AFTER 4 WEEKS, Q4 WEEKS FOR 12 MONTHS, DOSAGE AT 9.2 ON 12OCT2022 (4TH DOSE)
     Route: 042
     Dates: start: 20221012
  6. INFLECTRA [Suspect]
     Active Substance: INFLIXIMAB-DYYB
     Dosage: 300 MG EVERY 4 WEEK
     Route: 042
     Dates: start: 20221215

REACTIONS (7)
  - Weight increased [Unknown]
  - Off label use [Unknown]
  - Off label use [Unknown]
  - Intentional product use issue [Unknown]
  - Expired product administered [Unknown]
  - Drug level above therapeutic [Unknown]
  - Off label use [Unknown]

NARRATIVE: CASE EVENT DATE: 20220912
